FAERS Safety Report 11331664 (Version 2)
Quarter: 2015Q3

REPORT INFORMATION
  Report Type: Spontaneous
  Country: BR (occurrence: BR)
  Receive Date: 20150803
  Receipt Date: 20150817
  Transmission Date: 20151125
  Serious: Yes (Other)
  Sender: FDA-Public Use
  Company Number: BR-BAYER-2015-390852

PATIENT
  Age: 51 Year
  Sex: Female
  Weight: 57 kg

DRUGS (4)
  1. ULTRAVIST [Suspect]
     Active Substance: IOPROMIDE
     Indication: COMPUTERISED TOMOGRAM
     Dosage: UNK
     Route: 042
     Dates: start: 20150720, end: 20150720
  2. ULTRAVIST [Suspect]
     Active Substance: IOPROMIDE
     Indication: TONSIL CANCER
     Dosage: UNK
     Route: 042
     Dates: start: 20150720, end: 20150720
  3. LEVOTHYROXINE. [Concomitant]
     Active Substance: LEVOTHYROXINE
     Dosage: 75 ?G, QD
     Route: 048
  4. OMEPRAZOLE. [Concomitant]
     Active Substance: OMEPRAZOLE
     Dosage: 20 MG, QD
     Route: 048

REACTIONS (6)
  - Suffocation feeling [Recovered/Resolved]
  - Hypotension [Recovered/Resolved]
  - Periorbital oedema [Recovered/Resolved]
  - Eye irritation [Recovered/Resolved]
  - Type I hypersensitivity [Recovered/Resolved]
  - Flushing [Recovered/Resolved]

NARRATIVE: CASE EVENT DATE: 20150720
